FAERS Safety Report 19615466 (Version 1)
Quarter: 2021Q3

REPORT INFORMATION
  Report Type: Spontaneous
  Country: GB (occurrence: GB)
  Receive Date: 20210727
  Receipt Date: 20210727
  Transmission Date: 20211014
  Serious: Yes (Other)
  Sender: FDA-Public Use
  Company Number: GB-MYLANLABS-2021M1045752

PATIENT
  Age: 84 Year
  Sex: Male
  Weight: 58 kg

DRUGS (12)
  1. ATORVASTATIN [Concomitant]
     Active Substance: ATORVASTATIN
     Dosage: 1 DOSAGE FORM, QD
     Dates: start: 20210201
  2. TRIMETHOPRIM. [Concomitant]
     Active Substance: TRIMETHOPRIM
     Dosage: 1 DOSAGE FORM, BID
     Dates: start: 20210705, end: 20210708
  3. HYDROCORTISONE. [Concomitant]
     Active Substance: HYDROCORTISONE
     Dosage: 1 DOSAGE FORM, BID
     Dates: start: 20210608, end: 20210609
  4. AMLODIPINE [Concomitant]
     Active Substance: AMLODIPINE BESYLATE
     Dates: start: 20210201
  5. AMOXICILLIN. [Concomitant]
     Active Substance: AMOXICILLIN
     Dosage: TAKE ONE 3 TIMES/DAY
     Dates: start: 20210607, end: 20210612
  6. LAXIDO [Concomitant]
     Active Substance: POLYETHYLENE GLYCOL 3350\POTASSIUM CHLORIDE\SODIUM BICARBONATE\SODIUM CHLORIDE
     Dosage: DISSOLVE CONTENTS OF ONE SACHET IN HALF A GLASS...
     Dates: start: 20210201
  7. LEVOTHYROXINE. [Concomitant]
     Active Substance: LEVOTHYROXINE
     Dosage: TAKE AT LEAST 30 MINS BEFORE FO...
     Dates: start: 20210201
  8. PIVMECILLINAM [Concomitant]
     Active Substance: AMDINOCILLIN PIVOXIL
     Dosage: TAKE TWO TABLETS INITIALLY THEN ONE THREE TIMES...
     Dates: start: 20210615, end: 20210618
  9. SENNA                              /00142201/ [Concomitant]
     Active Substance: SENNA LEAF
     Dosage: ONE OR TWO TO BE TAKEN AT NIGHT AS REQUIRED FOR...
     Dates: start: 20210201
  10. DONEPEZIL. [Suspect]
     Active Substance: DONEPEZIL
     Indication: DEMENTIA ALZHEIMER^S TYPE
     Dosage: UNK
     Route: 048
     Dates: start: 20210601, end: 20210623
  11. NITROFURANTOIN. [Concomitant]
     Active Substance: NITROFURANTOIN
     Dosage: FOR 7 DAYS, TO TRE...
     Dates: start: 20210602, end: 20210609
  12. ZEROBASE                           /00103901/ [Concomitant]
     Dosage: APPLY 2?3 TIMES DAILY
     Dates: start: 20210201

REACTIONS (5)
  - Hypersomnia [Recovered/Resolved]
  - Decreased appetite [Recovered/Resolved]
  - Balance disorder [Recovered/Resolved]
  - Decreased interest [Recovered/Resolved]
  - Social avoidant behaviour [Recovered/Resolved]

NARRATIVE: CASE EVENT DATE: 20210621
